FAERS Safety Report 7605849-X (Version None)
Quarter: 2011Q3

REPORT INFORMATION
  Report Type: 
  Country: None (occurrence: None)
  Receive Date: 20110713
  Receipt Date: 20110629
  Transmission Date: 20111222
  Serious: Yes (Hospitalization)
  Sender: FDA-Public Use
  Company Number: GB-BAYER-2011-058779

PATIENT
  Age: 64 Year
  Sex: Male
  Weight: 111 kg

DRUGS (12)
  1. GLUCOZIDE [Concomitant]
     Indication: DIABETES MELLITUS
     Dosage: 160 MG, BID
  2. BISOPROLOL FUMARATE [Concomitant]
     Indication: ANGINA PECTORIS
     Dosage: 10 MG, QD
  3. BISOPROLOL FUMARATE [Concomitant]
     Indication: HYPERTENSION
  4. DIPYRIDAMOLE [Concomitant]
     Indication: TRANSIENT ISCHAEMIC ATTACK
     Dosage: 200 MG, BID
  5. ENALAPRIL MALEATE [Concomitant]
     Indication: HYPERTENSION
     Dosage: 20 MG, UNK
  6. ASPIRIN [Concomitant]
     Indication: PROPHYLAXIS
     Dosage: 75 MG, UNK
  7. UNCODEABLE ^UNCLASSIFIABLE^ [Concomitant]
     Indication: DIABETES MELLITUS
     Dosage: 60 U, UNK
  8. AMLODIPINE [Concomitant]
     Indication: HYPERTENSION
     Dosage: 5 UNK, UNK
  9. ISOSORBIDE DINITRATE [Concomitant]
     Indication: PROPHYLAXIS
     Dosage: UNK UNK, BID
  10. SORAFENIB (RAF KINASE INHIBITOR) [Suspect]
     Indication: HEPATIC NEOPLASM MALIGNANT
     Dosage: 400 MG, UNK
     Route: 048
     Dates: start: 20110617, end: 20110618
  11. SIMVASTATIN [Concomitant]
     Indication: BLOOD CHOLESTEROL INCREASED
  12. METFORMIN HCL [Concomitant]
     Indication: DIABETES MELLITUS
     Dosage: 1 G, BID

REACTIONS (3)
  - TRANSIENT ISCHAEMIC ATTACK [None]
  - HYPOAESTHESIA [None]
  - PERONEAL NERVE PALSY [None]
